FAERS Safety Report 8198857-4 (Version None)
Quarter: 2012Q1

REPORT INFORMATION
  Report Type: 
  Country: None (occurrence: None)
  Receive Date: 20120309
  Receipt Date: 20120215
  Transmission Date: 20120608
  Serious: No
  Sender: FDA-Public Use
  Company Number: US-AMGEN-USASP2012004156

PATIENT
  Age: 57 Year
  Sex: Female
  Weight: 60.317 kg

DRUGS (22)
  1. CETIRIZINE [Concomitant]
  2. LEXAPRO [Concomitant]
  3. DEPLIN [Concomitant]
  4. WELLBUTRIN [Concomitant]
  5. LAMICTAL [Concomitant]
  6. TOPAMAX [Concomitant]
  7. ALVESCO [Concomitant]
     Dosage: UNK
  8. DEXILANT [Concomitant]
  9. NASALCROM [Concomitant]
  10. RESTASIS [Concomitant]
  11. ASPIRIN [Concomitant]
  12. VENTOLIN [Concomitant]
  13. FLONASE [Concomitant]
     Dosage: UNK
  14. SYMBICORT [Concomitant]
     Dosage: UNK
  15. MAXALT [Concomitant]
  16. BENADRYL [Concomitant]
  17. CEREFOLIN NAC [Concomitant]
  18. CROMOLYN                           /00082101/ [Concomitant]
  19. PROLIA [Suspect]
     Indication: OSTEOPOROSIS
     Dosage: 60 MG, Q6MO
     Route: 058
     Dates: start: 20110627, end: 20110627
  20. SINGULAIR [Concomitant]
  21. DETROL LA [Concomitant]
  22. AMBIEN [Concomitant]

REACTIONS (7)
  - ASTHMA [None]
  - EAR INFECTION [None]
  - DENTAL CARIES [None]
  - TOOTH DISORDER [None]
  - DRY MOUTH [None]
  - CANDIDIASIS [None]
  - PAIN IN JAW [None]
